FAERS Safety Report 25978566 (Version 2)
Quarter: 2025Q4

REPORT INFORMATION
  Report Type: Spontaneous
  Country: US (occurrence: US)
  Receive Date: 20251030
  Receipt Date: 20251113
  Transmission Date: 20260118
  Serious: Yes (Death, Other)
  Sender: TEVA
  Company Number: US-TEVA-VS-3384737

PATIENT
  Age: 62 Year
  Sex: Male

DRUGS (15)
  1. VINCRISTINE [Suspect]
     Active Substance: VINCRISTINE
     Indication: Phaeochromocytoma
     Dosage: FOR 32 CYCLES OVER 3 YEARS
     Route: 065
     Dates: start: 2013, end: 201504
  2. ASPIRIN [Concomitant]
     Active Substance: ASPIRIN
     Indication: Coronary artery disease
     Route: 065
  3. LUTETIUM OXODOTREOTIDE LU-177 [Suspect]
     Active Substance: LUTETIUM OXODOTREOTIDE LU-177
     Indication: Phaeochromocytoma
     Dosage: LUTETIUM-(177LU)-OXODOTREOTIDE
     Route: 065
     Dates: start: 201912, end: 202208
  4. ROSUVASTATIN [Concomitant]
     Active Substance: ROSUVASTATIN
     Indication: Hyperlipidaemia
     Route: 065
  5. CYCLOPHOSPHAMIDE [Suspect]
     Active Substance: CYCLOPHOSPHAMIDE
     Indication: Phaeochromocytoma
     Dosage: FOR 32 CYCLES OVER 3 YEARS
     Route: 065
     Dates: start: 2013, end: 201504
  6. GLYBURIDE [Concomitant]
     Active Substance: GLYBURIDE
     Indication: Diabetes mellitus
     Route: 065
  7. GEMFIBROZIL [Concomitant]
     Active Substance: GEMFIBROZIL
     Indication: Hyperlipidaemia
     Route: 065
  8. DENOSUMAB [Suspect]
     Active Substance: DENOSUMAB
     Indication: Metastases to bone
     Route: 058
     Dates: start: 201702
  9. Metirosine [Concomitant]
     Indication: Blood catecholamines increased
     Route: 065
  10. OCTREOTIDE [Suspect]
     Active Substance: OCTREOTIDE
     Indication: Phaeochromocytoma
     Route: 058
  11. PROPRANOLOL [Concomitant]
     Active Substance: PROPRANOLOL HYDROCHLORIDE
     Indication: Blood catecholamines increased
     Dosage: 3 TIMES DAILY
     Route: 065
  12. DOXAZOSIN [Concomitant]
     Active Substance: DOXAZOSIN MESYLATE
     Indication: Blood catecholamines increased
     Route: 065
  13. TEMOZOLOMIDE [Suspect]
     Active Substance: TEMOZOLOMIDE
     Indication: Phaeochromocytoma
     Dosage: FOR 5 DAYS OF EACH 28-DAY CYCLE
     Route: 065
     Dates: end: 2017
  14. DACARBAZINE [Suspect]
     Active Substance: DACARBAZINE
     Indication: Phaeochromocytoma
     Dosage: FOR 32 CYCLES OVER 3 YEARS
     Route: 065
     Dates: start: 2013, end: 201504
  15. METFORMIN [Concomitant]
     Active Substance: METFORMIN HYDROCHLORIDE
     Indication: Diabetes mellitus
     Route: 065

REACTIONS (3)
  - Neuropathy peripheral [Fatal]
  - Pancytopenia [Fatal]
  - Drug ineffective [Fatal]
